FAERS Safety Report 12419849 (Version 3)
Quarter: 2016Q3

REPORT INFORMATION
  Report Type: Spontaneous
  Country: US (occurrence: US)
  Receive Date: 20160531
  Receipt Date: 20160729
  Transmission Date: 20161109
  Serious: No
  Sender: FDA-Public Use
  Company Number: US-GLAXOSMITHKLINE-US2016067825

PATIENT
  Age: 24 Year
  Sex: Female
  Weight: 56.69 kg

DRUGS (12)
  1. ETHOSUXIMIDE. [Concomitant]
     Active Substance: ETHOSUXIMIDE
     Indication: SEIZURE
     Dosage: 250 MG, QID
  2. TYLENOL [Concomitant]
     Active Substance: ACETAMINOPHEN
  3. LORATADINE. [Concomitant]
     Active Substance: LORATADINE
  4. FOLIC ACID. [Concomitant]
     Active Substance: FOLIC ACID
     Dosage: UNK, QD
  5. FIORICET [Concomitant]
     Active Substance: ACETAMINOPHEN\BUTALBITAL\CAFFEINE
     Indication: HEADACHE
  6. VOLTAREN [Concomitant]
     Active Substance: DICLOFENAC SODIUM
     Indication: PAIN
  7. SERTRALINE [Suspect]
     Active Substance: SERTRALINE HYDROCHLORIDE
     Indication: PRODUCT USED FOR UNKNOWN INDICATION
  8. SOLU-MEDROL [Concomitant]
     Active Substance: METHYLPREDNISOLONE SODIUM SUCCINATE
  9. METOCLOPRAMIDE. [Concomitant]
     Active Substance: METOCLOPRAMIDE
     Indication: NAUSEA
     Dosage: 5 MG, QID
  10. FAMOTIDINE. [Concomitant]
     Active Substance: FAMOTIDINE
  11. BENLYSTA [Suspect]
     Active Substance: BELIMUMAB
     Indication: SYSTEMIC LUPUS ERYTHEMATOSUS
     Dosage: 600 MG, U
     Route: 042
     Dates: start: 20160416, end: 20160430
  12. MIRENA [Concomitant]
     Active Substance: LEVONORGESTREL

REACTIONS (10)
  - Abdominal discomfort [Unknown]
  - Migraine [Recovered/Resolved]
  - Sensation of foreign body [Recovered/Resolved]
  - Hypertension [Recovered/Resolved]
  - Throat tightness [Unknown]
  - Alopecia [Unknown]
  - Hypersensitivity [Unknown]
  - Gastrointestinal pain [Recovered/Resolved]
  - Blood pressure increased [Unknown]
  - Nausea [Recovered/Resolved]

NARRATIVE: CASE EVENT DATE: 201604
